FAERS Safety Report 9821239 (Version 1)
Quarter: 2014Q1

REPORT INFORMATION
  Report Type: Spontaneous
  Country: US (occurrence: None)
  Receive Date: 20140115
  Receipt Date: 20140115
  Transmission Date: 20141002
  Serious: No
  Sender: FDA-Public Use
  Company Number: None

PATIENT
  Age: 41 Year
  Sex: Female
  Weight: 83.92 kg

DRUGS (1)
  1. BUPROPION HYDROCHLORIDE XL [Suspect]
     Indication: DEPRESSION
     Route: 048
     Dates: start: 20130228, end: 20130415

REACTIONS (3)
  - Depression [None]
  - Suicidal ideation [None]
  - Anxiety [None]
